FAERS Safety Report 5711947-8 (Version None)
Quarter: 2008Q2

REPORT INFORMATION
  Report Type: 
  Country: None (occurrence: None)
  Receive Date: 20080421
  Receipt Date: 20080409
  Transmission Date: 20081010
  Serious: Yes (Hospitalization, Other)
  Sender: FDA-Public Use
  Company Number: FR-GILEAD-2008-0016017

PATIENT
  Age: 36 Year
  Sex: Male

DRUGS (2)
  1. TRUVADA [Suspect]
     Indication: HIV INFECTION
     Route: 048
     Dates: start: 20070919, end: 20080109
  2. EFAVIRENZ [Concomitant]
     Dates: start: 20010101

REACTIONS (3)
  - HAEMARTHROSIS [None]
  - HYPERTENSION [None]
  - OSTEOPENIA [None]
